FAERS Safety Report 14470266 (Version 3)
Quarter: 2018Q4

REPORT INFORMATION
  Report Type: Report from Study
  Country: TH (occurrence: TH)
  Receive Date: 20180131
  Receipt Date: 20181119
  Transmission Date: 20190204
  Serious: Yes (Other)
  Sender: FDA-Public Use
  Company Number: TH-VIIV HEALTHCARE LIMITED-TH2018GSK013308

PATIENT
  Age: 41 Year
  Sex: Male
  Weight: 56.9 kg

DRUGS (4)
  1. RITONAVIR. [Concomitant]
     Active Substance: RITONAVIR
     Indication: HIV INFECTION
     Dosage: 200 MG, QD
     Dates: start: 20180125
  2. LOPINAVIR [Concomitant]
     Active Substance: LOPINAVIR
     Indication: HIV INFECTION
     Dosage: 800 MG, QD
     Dates: start: 20180125
  3. DOLUTEGRAVIR [Suspect]
     Active Substance: DOLUTEGRAVIR
     Indication: HIV INFECTION
     Dosage: 50 MG, QD
     Route: 048
     Dates: start: 20170222, end: 20180124
  4. ABACAVIR SULFATE + LAMIVUDINE [Suspect]
     Active Substance: ABACAVIR SULFATE\LAMIVUDINE
     Indication: HIV INFECTION
     Dosage: 600/300 MG, QD
     Route: 048
     Dates: start: 20170313

REACTIONS (1)
  - Chronic hepatitis C [Recovered/Resolved]

NARRATIVE: CASE EVENT DATE: 20180124
